FAERS Safety Report 13757109 (Version 3)
Quarter: 2017Q4

REPORT INFORMATION
  Report Type: Spontaneous
  Country: DE (occurrence: DE)
  Receive Date: 20170715
  Receipt Date: 20171103
  Transmission Date: 20180320
  Serious: Yes (Hospitalization, Other)
  Sender: FDA-Public Use
  Company Number: DE-009507513-1707DEU002741

PATIENT
  Age: 50 Year
  Sex: Male

DRUGS (4)
  1. LYRICA [Concomitant]
     Active Substance: PREGABALIN
     Dosage: 75 MG, TID
     Route: 048
  2. PANTOPRAZOLE [Concomitant]
     Active Substance: PANTOPRAZOLE
     Indication: GASTROOESOPHAGEAL REFLUX DISEASE
     Dosage: 20 MG, BID
     Route: 048
  3. KEYTRUDA [Suspect]
     Active Substance: PEMBROLIZUMAB
     Indication: PERITONEAL MESOTHELIOMA MALIGNANT
     Dosage: 2 MG/KG, UNK
     Route: 042
     Dates: start: 201606
  4. OPIUM TINCTURE [Concomitant]
     Active Substance: MORPHINE
     Indication: DIARRHOEA
     Dosage: 10 GTT, TID
     Route: 048

REACTIONS (5)
  - Acute disseminated encephalomyelitis [Recovering/Resolving]
  - Off label use [Unknown]
  - Sepsis [Recovering/Resolving]
  - Musculoskeletal pain [Not Recovered/Not Resolved]
  - Paraparesis [Recovering/Resolving]

NARRATIVE: CASE EVENT DATE: 201606
